FAERS Safety Report 10154671 (Version 1)
Quarter: 2014Q2

REPORT INFORMATION
  Report Type: Report from Study
  Country: NL (occurrence: NL)
  Receive Date: 20140506
  Receipt Date: 20140506
  Transmission Date: 20141212
  Serious: Yes (Other)
  Sender: FDA-Public Use
  Company Number: NL-BAYER-2014-062743

PATIENT
  Age: 61 Year
  Sex: Female

DRUGS (1)
  1. SORAFENIB (RAF KINASE INHIBITOR) [Suspect]
     Indication: CLEAR CELL RENAL CELL CARCINOMA
     Dosage: 400 MG, BID

REACTIONS (1)
  - Clear cell renal cell carcinoma [None]
